FAERS Safety Report 4282899-5 (Version None)
Quarter: 2004Q1

REPORT INFORMATION
  Report Type: 
  Country: None (occurrence: None)
  Receive Date: 20040130
  Receipt Date: 20031010
  Transmission Date: 20041129
  Serious: No
  Sender: FDA-Public Use
  Company Number: US-BRISTOL-MYERS SQUIBB COMPANY-12408126

PATIENT
  Age: 64 Year
  Sex: Female
  Weight: 91 kg

DRUGS (13)
  1. SERZONE [Suspect]
     Indication: DEPRESSION
     Dosage: AT BEDTIME
     Route: 048
  2. KLONOPIN [Concomitant]
  3. LESCOL [Concomitant]
  4. VIOXX [Concomitant]
  5. DYAZIDE [Concomitant]
  6. ZANTAC [Concomitant]
  7. DARVOCET [Concomitant]
  8. CLINDAMYCIN [Concomitant]
  9. OMEGA 3 FISH OIL [Concomitant]
  10. CALCIUM [Concomitant]
  11. MAGNESIUM [Concomitant]
  12. ZINC SULFATE [Concomitant]
  13. MULTIVITAMIN [Concomitant]

REACTIONS (4)
  - ALOPECIA [None]
  - DRY MOUTH [None]
  - DYSGEUSIA [None]
  - FOOD CRAVING [None]
